FAERS Safety Report 10970188 (Version 1)
Quarter: 2015Q1

REPORT INFORMATION
  Report Type: Spontaneous
  Country: US (occurrence: US)
  Receive Date: 20150331
  Receipt Date: 20150331
  Transmission Date: 20150721
  Serious: No
  Sender: FDA-Public Use
  Company Number: US-MYLANLABS-2015M1001711

PATIENT
  Sex: Female

DRUGS (2)
  1. ESTRADIOL. [Suspect]
     Active Substance: ESTRADIOL
     Indication: HORMONE REPLACEMENT THERAPY
     Dosage: 0.0375 MG, QD, CHANGED QWEEK
     Route: 062
     Dates: start: 2013, end: 2013
  2. ESTRADIOL. [Suspect]
     Active Substance: ESTRADIOL
     Indication: OSTEOPOROSIS

REACTIONS (1)
  - Application site burn [Recovered/Resolved]

NARRATIVE: CASE EVENT DATE: 2013
